FAERS Safety Report 19315880 (Version 2)
Quarter: 2021Q3

REPORT INFORMATION
  Report Type: Report from Study
  Country: US (occurrence: US)
  Receive Date: 20210528
  Receipt Date: 20210731
  Transmission Date: 20211014
  Serious: No
  Sender: FDA-Public Use
  Company Number: US-ACADIA PHARMACEUTICALS INC.-ACA-2021-PIM-001681

PATIENT
  Sex: Male

DRUGS (9)
  1. TYLENOL [Concomitant]
     Active Substance: ACETAMINOPHEN
  2. MELATONIN [Concomitant]
     Active Substance: MELATONIN
  3. GOCOVRI [Concomitant]
     Active Substance: AMANTADINE
     Indication: DYSKINESIA
     Dosage: 274 MILLIGRAM, QD
     Route: 048
     Dates: start: 20180423
  4. GOCOVRI [Concomitant]
     Active Substance: AMANTADINE
     Dosage: 274 MILLIGRAM, QD
     Route: 048
  5. DONEPEZIL. [Concomitant]
     Active Substance: DONEPEZIL
  6. RYTARY [Concomitant]
     Active Substance: CARBIDOPA\LEVODOPA
     Dosage: 95 MILLIGRAM
  7. NEUPRO [Concomitant]
     Active Substance: ROTIGOTINE
     Dosage: 1 MILLIGRAM, EVERY 24 HOUR
  8. NUPLAZID [Suspect]
     Active Substance: PIMAVANSERIN TARTRATE
     Dosage: 10 MILLIGRAM, QD
     Route: 065
  9. INBRIJA [Concomitant]
     Active Substance: LEVODOPA

REACTIONS (2)
  - Dementia [Unknown]
  - Underdose [Unknown]
